FAERS Safety Report 8294099-2 (Version None)
Quarter: 2012Q2

REPORT INFORMATION
  Report Type: 
  Country: None (occurrence: None)
  Receive Date: 20120418
  Receipt Date: 20120406
  Transmission Date: 20120825
  Serious: Yes (Hospitalization)
  Sender: FDA-Public Use
  Company Number: US-JNJFOC-20110709201

PATIENT
  Sex: Male
  Weight: 94.35 kg

DRUGS (6)
  1. REMICADE [Suspect]
     Indication: RHEUMATOID ARTHRITIS
     Route: 042
     Dates: end: 20110301
  2. REMICADE [Suspect]
     Route: 042
     Dates: end: 20110301
  3. COUMADIN [Suspect]
     Indication: PORTAL VEIN THROMBOSIS
     Route: 048
     Dates: start: 20110201, end: 20110301
  4. REMICADE [Suspect]
     Route: 042
     Dates: start: 20110801
  5. REMICADE [Suspect]
     Indication: CROHN'S DISEASE
     Route: 042
     Dates: start: 20110801
  6. PRADAXA [Concomitant]
     Indication: COAGULOPATHY

REACTIONS (12)
  - PORTAL VEIN THROMBOSIS [None]
  - KNEE ARTHROPLASTY [None]
  - FACTOR V DEFICIENCY [None]
  - CARDIAC FAILURE CONGESTIVE [None]
  - INFUSION RELATED REACTION [None]
  - CARDIOMYOPATHY [None]
  - ABNORMAL LOSS OF WEIGHT [None]
  - HAEMATOMA [None]
  - SEPSIS [None]
  - HOT FLUSH [None]
  - PULMONARY THROMBOSIS [None]
  - PNEUMONIA [None]
